FAERS Safety Report 5744543-7 (Version None)
Quarter: 2008Q2

REPORT INFORMATION
  Report Type: 
  Country: None (occurrence: None)
  Receive Date: 20080520
  Receipt Date: 20080513
  Transmission Date: 20081010
  Serious: Yes (Other)
  Sender: FDA-Public Use
  Company Number: US-BOEHRINGER INGELHEIM GMBH, GERMANY-2008-BP-07560BP

PATIENT
  Sex: Male
  Weight: 1 kg

DRUGS (4)
  1. VIRAMUNE [Suspect]
     Route: 015
  2. REYATAZ [Suspect]
     Route: 015
  3. RITONAVIR [Suspect]
     Route: 015
  4. LAMIVUDINE [Suspect]
     Route: 015

REACTIONS (2)
  - PREMATURE BABY [None]
  - SMALL FOR DATES BABY [None]
